FAERS Safety Report 19713149 (Version 3)
Quarter: 2021Q3

REPORT INFORMATION
  Report Type: Report from Study
  Country: CA (occurrence: CA)
  Receive Date: 20210816
  Receipt Date: 20210906
  Transmission Date: 20211014
  Serious: Yes (Other)
  Sender: FDA-Public Use
  Company Number: CA-JNJFOC-20210822979

PATIENT
  Age: 16 Year
  Sex: Female
  Weight: 59 kg

DRUGS (2)
  1. REMICADE [Suspect]
     Active Substance: INFLIXIMAB
     Dosage: 0N 31?AUG?2021, THE PATIENT TOOK 4TH INFUSION OF  600 MG DOSE.
     Route: 042
     Dates: start: 2021
  2. REMICADE [Suspect]
     Active Substance: INFLIXIMAB
     Indication: COLITIS ULCERATIVE
     Dosage: ON 10?AUG?2021, THE PATIENT RECEIVED 2ND INFLIXIMAB INFUSION FOR DOSE OF 590 MG AND PARTIAL HARVEY?B
     Route: 042
     Dates: start: 20210701

REACTIONS (4)
  - Haematochezia [Not Recovered/Not Resolved]
  - Melaena [Unknown]
  - Drug level decreased [Unknown]
  - Palpitations [Unknown]

NARRATIVE: CASE EVENT DATE: 2021
